FAERS Safety Report 5252108-9 (Version None)
Quarter: 2007Q1

REPORT INFORMATION
  Report Type: 
  Country: None (occurrence: None)
  Receive Date: 20070226
  Receipt Date: 20070209
  Transmission Date: 20070707
  Serious: Yes (Hospitalization, Other)
  Sender: FDA-Public Use
  Company Number: 310005L07MEX

PATIENT
  Age: 26 Year
  Sex: Female

DRUGS (2)
  1. FOLLITROPIN ALPHA (FOLLITROPIN ALFA) [Suspect]
  2. CHORIOGONADRTOPIN ALFA (CHORIOGONADRTOPIN ALFA ) [Suspect]

REACTIONS (8)
  - ABDOMINAL PAIN [None]
  - ABORTION SPONTANEOUS [None]
  - ASCITES [None]
  - HYPOALBUMINAEMIA [None]
  - NAUSEA [None]
  - OLIGURIA [None]
  - OVARIAN HYPERSTIMULATION SYNDROME [None]
  - VOMITING [None]
